FAERS Safety Report 9046570 (Version 1)
Quarter: 2013Q1

REPORT INFORMATION
  Report Type: Spontaneous
  Country: US (occurrence: None)
  Receive Date: 20130128
  Receipt Date: 20130128
  Transmission Date: 20140127
  Serious: No
  Sender: FDA-Public Use
  Company Number: None

PATIENT
  Age: 42 Year
  Sex: Female

DRUGS (1)
  1. COPAXONE, 20 MG, TEVA [Suspect]
     Indication: MULTIPLE SCLEROSIS
     Dates: start: 20121031

REACTIONS (3)
  - Injection site mass [None]
  - Injection site bruising [None]
  - Hepatic enzyme increased [None]
